FAERS Safety Report 5158453-X (Version None)
Quarter: 2006Q4

REPORT INFORMATION
  Report Type: 
  Country: None (occurrence: None)
  Receive Date: 20061128
  Receipt Date: 20061116
  Transmission Date: 20070319
  Serious: Yes (Other)
  Sender: FDA-Public Use
  Company Number: PHEH2006US14408

PATIENT
  Age: 65 Year
  Sex: Female

DRUGS (2)
  1. FAMVIR [Suspect]
     Indication: HERPES SIMPLEX
     Dosage: 1500 UNK, ONCE/SINGLE
  2. ANTIHYPERTENSIVES [Concomitant]

REACTIONS (1)
  - PALPITATIONS [None]
